FAERS Safety Report 21139241 (Version 1)
Quarter: 2022Q3

REPORT INFORMATION
  Report Type: Spontaneous
  Country: US (occurrence: None)
  Receive Date: 20220727
  Receipt Date: 20220727
  Transmission Date: 20221027
  Serious: Yes (Other)
  Sender: FDA-Public Use
  Company Number: None

PATIENT
  Age: 69 Year
  Sex: Male

DRUGS (2)
  1. TAGRISSO [Suspect]
     Active Substance: OSIMERTINIB
     Indication: Non-small cell lung cancer
     Dosage: FREQUENCY : DAILY;?
     Route: 048
     Dates: start: 20210119
  2. XGEVA [Concomitant]
     Active Substance: DENOSUMAB
     Dates: start: 20210212

REACTIONS (1)
  - Back pain [None]

NARRATIVE: CASE EVENT DATE: 20220715
